FAERS Safety Report 11096099 (Version 1)
Quarter: 2015Q2

REPORT INFORMATION
  Report Type: Report from Study
  Country: JP (occurrence: None)
  Receive Date: 20150505
  Receipt Date: 20150505
  Transmission Date: 20150821
  Serious: Yes (Other)
  Sender: FDA-Public Use
  Company Number: 2015JP003724

PATIENT
  Age: 43 Year
  Sex: Female

DRUGS (17)
  1. LYRICA [Suspect]
     Active Substance: PREGABALIN
     Indication: FIBROMYALGIA
     Dosage: 225 MG, ONCE DAILY, ORAL
     Route: 048
  2. LYRICA [Suspect]
     Active Substance: PREGABALIN
     Indication: FIBROMYALGIA
     Dosage: 150MG , ONCE DAILY, ORAL
     Route: 048
  3. PREDONINE (PREDNISOLONE) [Concomitant]
  4. LYRICA [Suspect]
     Active Substance: PREGABALIN
     Indication: FIBROMYALGIA
     Dosage: 25 MG, ONCE DAILY, ORAL
     Route: 048
  5. RIVOTRIL [Concomitant]
     Active Substance: CLONAZEPAM
  6. LANSOPRAZOLE (LANSOPRAZOLE) [Concomitant]
     Active Substance: LANSOPRAZOLE
  7. REGNITE (GABAPENTIN ENACARBIL) TABLET, 300MG [Suspect]
     Active Substance: GABAPENTIN ENACARBIL
     Indication: RESTLESS LEGS SYNDROME
     Dosage: 300 MG, ONCE DAILY, ORAL
     Route: 048
     Dates: start: 20130919
  8. MYSLEE (ZOLPIDEM TARTRATE) TABLET [Concomitant]
     Active Substance: ZOLPIDEM TARTRATE
  9. PARIET (RABEPRAZOLE SODIUM) (20 MG, GASTRO-RESISTANT TABLET) (RABEPRAZOLE SODIUM) [Concomitant]
     Active Substance: RABEPRAZOLE SODIUM
  10. PAXIL (PIROXICAM) [Concomitant]
  11. DEPAKENE-R (VALPROATE SODIUM) [Concomitant]
  12. LOXONIN (LOXOPROFEN SODIUM) [Concomitant]
     Active Substance: LOXOPROFEN SODIUM
  13. MUCOSTA (REBAMIPIDE) [Concomitant]
  14. PL (CAFFEINE, PARACETAMOL, PROMETHAZINE METHYLENE DISALICYLATE, SALICYLAMIDE) [Concomitant]
  15. RESLIN (TRAZODONE HYDROCHLORIDE) [Concomitant]
  16. TRAMCET (PARACETAMOL, TRAMADOL HYDROCHLORIDE) [Concomitant]
  17. CLARITH (CLARITHROMYCIN) [Concomitant]

REACTIONS (7)
  - Urticaria [None]
  - Asthenopia [None]
  - Polymyalgia rheumatica [None]
  - Back pain [None]
  - Condition aggravated [None]
  - Dry eye [None]
  - Weight increased [None]

NARRATIVE: CASE EVENT DATE: 20130926
